FAERS Safety Report 7796095-8 (Version None)
Quarter: 2011Q4

REPORT INFORMATION
  Report Type: 
  Country: None (occurrence: None)
  Receive Date: 20111004
  Receipt Date: 20110927
  Transmission Date: 20120403
  Serious: Yes (Death, Hospitalization)
  Sender: FDA-Public Use
  Company Number: JP-CELGENEUS-087-CCAZA-11093760

PATIENT
  Sex: Male
  Weight: 80 kg

DRUGS (19)
  1. MEROPENEM [Concomitant]
     Dosage: 1 GRAM
     Route: 041
     Dates: start: 20110511, end: 20110524
  2. GABEXATE MESILATE [Concomitant]
     Dosage: 3000 MILLIGRAM
     Route: 041
     Dates: start: 20110713, end: 20110722
  3. AZACITIDINE [Suspect]
     Dosage: 75 MILLIGRAM/SQ. METER
     Route: 041
     Dates: start: 20110509, end: 20110515
  4. AZACITIDINE [Suspect]
     Dosage: 75 MILLIGRAM/SQ. METER
     Route: 041
     Dates: start: 20110608, end: 20110614
  5. AZACITIDINE [Suspect]
     Dosage: 75 MILLIGRAM/SQ. METER
     Route: 041
     Dates: start: 20110708, end: 20110710
  6. PREDNISOLONE [Concomitant]
     Dosage: 40 MILLIGRAM
     Route: 041
     Dates: start: 20110613, end: 20110722
  7. MEROPENEM [Concomitant]
     Dosage: 1 GRAM
     Route: 041
     Dates: start: 20110610, end: 20110623
  8. DORIPENEM MONOHYDRATE [Concomitant]
     Dosage: .75 GRAM
     Route: 041
     Dates: start: 20110525, end: 20110609
  9. PENTAMIDINE ISETHIONATE [Concomitant]
     Dosage: 300 MILLIGRAM
     Route: 041
     Dates: start: 20110711, end: 20110722
  10. ORGARAN [Concomitant]
     Dosage: 2500 IU (INTERNATIONAL UNIT)
     Route: 041
     Dates: start: 20110528, end: 20110629
  11. ZYVOX [Concomitant]
     Dosage: 1.2 GRAM
     Route: 041
     Dates: start: 20110710, end: 20110718
  12. MEROPENEM [Concomitant]
     Dosage: 3 GRAM
     Route: 041
     Dates: start: 20110707, end: 20110719
  13. VANCOMYCIN [Concomitant]
     Dosage: 1 DOSAGE FORMS
     Route: 041
     Dates: start: 20110702, end: 20110710
  14. CYTARABINE [Concomitant]
     Dosage: 40 MILLIGRAM
     Route: 041
     Dates: start: 20110520, end: 20110524
  15. CYTARABINE [Concomitant]
     Dosage: 1 DOSAGE FORMS
     Route: 041
     Dates: start: 20110530, end: 20110710
  16. GABEXATE MESILATE [Concomitant]
     Dosage: 3500 MILLIGRAM
     Route: 041
     Dates: start: 20110524, end: 20110527
  17. PAZUCROSS [Concomitant]
     Dosage: 1 GRAM
     Route: 041
     Dates: start: 20110710, end: 20110722
  18. RECOMODULIN [Concomitant]
     Dosage: 300 MILLIGRAM
     Route: 041
     Dates: start: 20110509, end: 20110712
  19. OMEGACIN [Concomitant]
     Dosage: 1.2 GRAM
     Route: 041
     Dates: start: 20110622, end: 20110705

REACTIONS (2)
  - PULMONARY ALVEOLAR HAEMORRHAGE [None]
  - HEPATIC FUNCTION ABNORMAL [None]
